FAERS Safety Report 7096222-4 (Version None)
Quarter: 2010Q4

REPORT INFORMATION
  Report Type: 
  Country: None (occurrence: None)
  Receive Date: 20101103
  Receipt Date: 20101019
  Transmission Date: 20110411
  Serious: Yes (Death)
  Sender: FDA-Public Use
  Company Number: 1000016294

PATIENT
  Age: 78 Year
  Sex: Female
  Weight: 70 kg

DRUGS (6)
  1. MEMANTINE HCL [Suspect]
     Indication: DEMENTIA ALZHEIMER'S TYPE
     Dosage: 20 MG (20 MG,2 IN 1 D),ORAL
     Route: 048
     Dates: start: 20090909, end: 20091101
  2. ESCITALOPRAM [Suspect]
     Indication: MAJOR DEPRESSION
     Dosage: 10 MG (10 MG,1 IN 1 D)
     Dates: end: 20091101
  3. AMISULPRIDE (AMISULPRIDE) (TABLETS) (AMISULPRIDE) [Concomitant]
  4. TRAVOPROST (TRAVOPROST) (TRAVOPROST) [Concomitant]
  5. DORZOLAMIDE/TIMOLOL (DORZOLAMIDE, TIMOLOL) (DORZOLAMIDE, TIMOLOL) [Concomitant]
  6. BRINZOLAMIDE (BRINZOLAMIDE) (BRINZOLAMIDE) [Concomitant]

REACTIONS (1)
  - DEATH [None]
